FAERS Safety Report 7942520-9 (Version None)
Quarter: 2011Q4

REPORT INFORMATION
  Report Type: 
  Country: None (occurrence: None)
  Receive Date: 20111128
  Receipt Date: 20111117
  Transmission Date: 20120403
  Serious: Yes (Hospitalization)
  Sender: FDA-Public Use
  Company Number: IE-GLAXOSMITHKLINE-B0761695A

PATIENT
  Sex: Female
  Weight: 57.2 kg

DRUGS (4)
  1. VOTRIENT [Suspect]
     Indication: THYROID CANCER
     Dosage: 200MG FOUR TIMES PER DAY
     Route: 048
  2. LEVOTHYROXINE SODIUM [Concomitant]
     Indication: THYROIDECTOMY
     Dosage: 100MCG PER DAY
  3. ATACAND [Concomitant]
     Indication: HYPERTENSION
  4. DEXAMETHASONE [Concomitant]
     Indication: PRODUCT USED FOR UNKNOWN INDICATION
     Route: 065

REACTIONS (3)
  - CHOKING [None]
  - SENSATION OF FOREIGN BODY [None]
  - OFF LABEL USE [None]
